FAERS Safety Report 9741159 (Version 2)
Quarter: 2014Q1

REPORT INFORMATION
  Report Type: Report from Study
  Country: BR (occurrence: BR)
  Receive Date: 20131209
  Receipt Date: 20140210
  Transmission Date: 20141002
  Serious: Yes (Other)
  Sender: FDA-Public Use
  Company Number: BR-ELI_LILLY_AND_COMPANY-BR201311008970

PATIENT
  Age: 76 Year
  Sex: Male

DRUGS (6)
  1. HUMAN INSULIN (RDNA ORIGIN) NPH [Suspect]
     Indication: TYPE 1 DIABETES MELLITUS
     Dosage: 20 IU, EACH MORNING
     Route: 058
     Dates: start: 19960919
  2. HUMAN INSULIN (RDNA ORIGIN) NPH [Suspect]
     Dosage: 12 IU, EACH EVENING
     Route: 058
     Dates: start: 19960919
  3. HUMAN INSULIN (RDNA ORIGIN) NPH [Suspect]
     Dosage: 10 IU, EACH MORNING
     Route: 058
     Dates: start: 2013
  4. HUMAN INSULIN (RDNA ORIGIN) NPH [Suspect]
     Dosage: 5 IU, EACH EVENING
     Route: 058
     Dates: start: 2013
  5. LISINOPRIL [Concomitant]
     Indication: BLOOD PRESSURE
     Dosage: 10 MG, QD
     Route: 065
  6. LORAZEPAM [Concomitant]
     Indication: SLEEP DISORDER
     Dosage: 2 MG, QD
     Route: 065

REACTIONS (4)
  - Visual impairment [Not Recovered/Not Resolved]
  - Cataract [Unknown]
  - Intraocular pressure increased [Not Recovered/Not Resolved]
  - Hypoglycaemia [Not Recovered/Not Resolved]
